FAERS Safety Report 14004671 (Version 3)
Quarter: 2018Q2

REPORT INFORMATION
  Report Type: Spontaneous
  Country: FR (occurrence: FR)
  Receive Date: 20170922
  Receipt Date: 20180528
  Transmission Date: 20180711
  Serious: Yes (Other)
  Sender: FDA-Public Use
  Company Number: FR-MERCK KGAA-2027285

PATIENT
  Age: 49 Year
  Sex: Female

DRUGS (1)
  1. NOVOTHYROX [Suspect]
     Active Substance: LEVOTHYROXINE SODIUM
     Indication: HYPOTHYROIDISM
     Route: 048
     Dates: start: 20170418, end: 201708

REACTIONS (28)
  - Fatigue [Recovering/Resolving]
  - Disturbance in attention [Recovering/Resolving]
  - Visual impairment [Not Recovered/Not Resolved]
  - Palpitations [Recovering/Resolving]
  - Depression [None]
  - Blood thyroid stimulating hormone increased [Recovered/Resolved]
  - Asthenia [Not Recovered/Not Resolved]
  - Muscle spasms [Recovering/Resolving]
  - Irritability [None]
  - Loss of personal independence in daily activities [None]
  - Aggression [None]
  - Aphasia [None]
  - Myalgia [None]
  - Cognitive disorder [None]
  - Social avoidant behaviour [None]
  - Somnolence [None]
  - Dyspnoea [Not Recovered/Not Resolved]
  - Discomfort [None]
  - Diffuse alopecia [Recovering/Resolving]
  - Apathy [None]
  - Amnesia [None]
  - Feeling abnormal [None]
  - Malaise [None]
  - Decreased activity [None]
  - Headache [Recovering/Resolving]
  - Weight increased [Recovering/Resolving]
  - Anxiety [None]
  - Libido decreased [None]

NARRATIVE: CASE EVENT DATE: 2017
